FAERS Safety Report 4744227-8 (Version None)
Quarter: 2005Q3

REPORT INFORMATION
  Report Type: 
  Country: None (occurrence: None)
  Receive Date: 20050812
  Receipt Date: 20050802
  Transmission Date: 20060218
  Serious: Yes (Disabling)
  Sender: FDA-Public Use
  Company Number: PHBS2005ES11246

PATIENT
  Age: 74 Year
  Sex: Female

DRUGS (2)
  1. ZOMETA [Suspect]
     Indication: MULTIPLE MYELOMA
     Route: 042
     Dates: start: 20030901, end: 20040601
  2. CORTICOSTEROIDS [Concomitant]
     Indication: ARTHRITIS
     Route: 065

REACTIONS (3)
  - BONE DISORDER [None]
  - MOUTH ULCERATION [None]
  - TOOTH EXTRACTION [None]
